FAERS Safety Report 9632760 (Version 1)
Quarter: 2013Q4

REPORT INFORMATION
  Report Type: Spontaneous
  Country: GB (occurrence: GB)
  Receive Date: 20131018
  Receipt Date: 20131018
  Transmission Date: 20140711
  Serious: Yes (Other)
  Sender: FDA-Public Use
  Company Number: GB-WATSON-2013-18991

PATIENT
  Age: 27 Year
  Sex: Female
  Weight: 117 kg

DRUGS (2)
  1. PROPRANOLOL (UNKNOWN) [Suspect]
     Indication: ANXIETY
     Dosage: 1 DF, TID
     Route: 048
     Dates: start: 20130920
  2. SERTRALINE [Concomitant]
     Indication: PRODUCT USED FOR UNKNOWN INDICATION
     Dosage: UNK
     Route: 065

REACTIONS (3)
  - Body temperature increased [Not Recovered/Not Resolved]
  - Hyperhidrosis [Not Recovered/Not Resolved]
  - Erythema [Not Recovered/Not Resolved]
